FAERS Safety Report 8020051-8 (Version None)
Quarter: 2012Q1

REPORT INFORMATION
  Report Type: 
  Country: None (occurrence: None)
  Receive Date: 20120103
  Receipt Date: 20111227
  Transmission Date: 20120608
  Serious: Yes (Hospitalization)
  Sender: FDA-Public Use
  Company Number: US-BAYER-2011-009244

PATIENT
  Age: 19 Year
  Sex: Female
  Weight: 68 kg

DRUGS (6)
  1. FLUOXETINE [Concomitant]
     Dosage: 20 MG, UNK
     Dates: start: 20080512, end: 20090512
  2. IBUPROFEN (ADVIL) [Concomitant]
  3. COMBIVENT [Concomitant]
     Dosage: UNK
     Dates: start: 20081022, end: 20091022
  4. MCG/ ACTUATION INHALATION AEROSOL [Concomitant]
  5. YAZ [Suspect]
     Indication: PREMENSTRUAL SYNDROME
     Dosage: UNK
     Dates: start: 20080512, end: 20090512
  6. KETOROLAC TROMETHAMINE [Concomitant]
     Dosage: 60 MG, UNK

REACTIONS (13)
  - DYSPEPSIA [None]
  - INJURY [None]
  - EMOTIONAL DISTRESS [None]
  - BILE DUCT STONE [None]
  - PAIN [None]
  - CHOLELITHIASIS [None]
  - PANCREATITIS [None]
  - ANXIETY [None]
  - GALLBLADDER DISORDER [None]
  - CHOLECYSTITIS CHRONIC [None]
  - FEAR [None]
  - PROCEDURAL PAIN [None]
  - ABDOMINAL PAIN [None]
